FAERS Safety Report 9679037 (Version 2)
Quarter: 2013Q4

REPORT INFORMATION
  Report Type: Report from Study
  Country: DE (occurrence: DE)
  Receive Date: 20131108
  Receipt Date: 20131108
  Transmission Date: 20140711
  Serious: Yes (Death, Life-Threatening, Hospitalization)
  Sender: FDA-Public Use
  Company Number: DE-ROCHE-1015821

PATIENT
  Age: 71 Year
  Sex: Female
  Weight: 89 kg

DRUGS (7)
  1. CAPECITABINE [Suspect]
     Indication: BREAST CANCER
     Dosage: DATE OF LAST DOSE PRIOR TO SAE: 21/NOV/2011
     Route: 048
     Dates: start: 20111116
  2. BEVACIZUMAB [Suspect]
     Indication: BREAST CANCER
     Dosage: DATE OF LAST DOSE PRIOR TO SAE: 16/NOV/2011
     Route: 042
     Dates: start: 20111116
  3. ALENDRONSAEURE [Concomitant]
     Route: 065
  4. PANTOZOL (GERMANY) [Concomitant]
     Route: 065
  5. BISOPROLOL [Concomitant]
     Route: 065
  6. VOLTAREN [Concomitant]
     Route: 065
  7. ALENDRONIC ACID [Concomitant]

REACTIONS (1)
  - Cerebrovascular disorder [Fatal]
